FAERS Safety Report 9861701 (Version 1)
Quarter: 2014Q1

REPORT INFORMATION
  Report Type: Spontaneous
  Country: US (occurrence: None)
  Receive Date: 20140131
  Receipt Date: 20140131
  Transmission Date: 20141002
  Serious: Yes (Hospitalization)
  Sender: FDA-Public Use
  Company Number: DL2014-0096

PATIENT
  Age: 23 Year
  Sex: Female

DRUGS (3)
  1. MIFEPRISTONE [Suspect]
     Indication: ABORTION INDUCED
     Route: 048
     Dates: start: 20130719
  2. MISOPROSTOL [Suspect]
     Route: 002
     Dates: start: 20130720
  3. LEVOFLOXACIN [Concomitant]

REACTIONS (7)
  - Haemorrhage [None]
  - Dizziness [None]
  - Pallor [None]
  - Hyperhidrosis [None]
  - Heart rate increased [None]
  - Uterine dilation and curettage [None]
  - Abortion complete [None]
